FAERS Safety Report 7427890-2 (Version None)
Quarter: 2011Q2

REPORT INFORMATION
  Report Type: 
  Country: None (occurrence: None)
  Receive Date: 20110418
  Receipt Date: 20110418
  Transmission Date: 20111010
  Serious: Yes (Other)
  Sender: FDA-Public Use
  Company Number: None

PATIENT
  Sex: Male
  Weight: 98.4306 kg

DRUGS (2)
  1. OMNIPAQUE 350 [Suspect]
     Indication: COMPUTERISED TOMOGRAM ABDOMEN
  2. OMNIPAQUE 350 [Suspect]
     Indication: COMPUTERISED TOMOGRAM THORAX

REACTIONS (1)
  - URTICARIA [None]
